FAERS Safety Report 23546876 (Version 2)
Quarter: 2024Q1

REPORT INFORMATION
  Report Type: Report from Study
  Country: US (occurrence: US)
  Receive Date: 20240221
  Receipt Date: 20240312
  Transmission Date: 20240410
  Serious: Yes (Hospitalization)
  Sender: FDA-Public Use
  Company Number: US-ASTELLAS-2024US005132

PATIENT
  Sex: Male

DRUGS (2)
  1. ENZALUTAMIDE [Suspect]
     Active Substance: ENZALUTAMIDE
     Indication: Prostate cancer
     Dosage: UNK UNK, UNKNOWN FREQ.
     Route: 065
  2. ORGOVYX [Concomitant]
     Active Substance: RELUGOLIX
     Indication: Prostate cancer
     Route: 065
     Dates: start: 20210415

REACTIONS (4)
  - Dyspepsia [Unknown]
  - Headache [Unknown]
  - Chest pain [Unknown]
  - Dyspnoea [Unknown]
